FAERS Safety Report 15495083 (Version 1)
Quarter: 2018Q4

REPORT INFORMATION
  Report Type: Spontaneous
  Country: US (occurrence: US)
  Receive Date: 20181012
  Receipt Date: 20181012
  Transmission Date: 20190205
  Serious: No
  Sender: FDA-Public Use
  Company Number: US-SA-2018SA283062

PATIENT
  Age: 19 Year
  Sex: Male
  Weight: 108.84 kg

DRUGS (1)
  1. DUPIXENT [Suspect]
     Active Substance: DUPILUMAB
     Indication: DERMATITIS ATOPIC
     Dosage: UNK UNK, QOW
     Dates: start: 20180811

REACTIONS (8)
  - Erythema [Unknown]
  - Skin exfoliation [Unknown]
  - Insomnia [Unknown]
  - Swelling [Unknown]
  - Pain [Unknown]
  - Dry skin [Unknown]
  - Pruritus [Unknown]
  - Paraesthesia [Unknown]

NARRATIVE: CASE EVENT DATE: 201810
